FAERS Safety Report 18610827 (Version 1)
Quarter: 2020Q4

REPORT INFORMATION
  Report Type: Spontaneous
  Country: US (occurrence: US)
  Receive Date: 20201211
  Receipt Date: 20201211
  Transmission Date: 20210114
  Serious: No
  Sender: FDA-Public Use
  Company Number: None

PATIENT
  Age: 61 Year
  Sex: Female
  Weight: 111.13 kg

DRUGS (3)
  1. TREMFYA [Suspect]
     Active Substance: GUSELKUMAB
     Indication: PSORIASIS
     Dosage: ?          OTHER FREQUENCY:WEEK 0 AND WEEK 4;?
     Route: 058
     Dates: start: 201807
  2. TREMFYA [Suspect]
     Active Substance: GUSELKUMAB
     Indication: DERMATITIS
     Dosage: ?          OTHER FREQUENCY:WEEK 0 AND WEEK 4;?
     Route: 058
     Dates: start: 201807
  3. TREMFYA [Suspect]
     Active Substance: GUSELKUMAB
     Indication: PSORIASIS

REACTIONS (1)
  - Urinary tract infection [None]
